FAERS Safety Report 17184938 (Version 1)
Quarter: 2019Q4

REPORT INFORMATION
  Report Type: Spontaneous
  Country: CA (occurrence: CA)
  Receive Date: 20191220
  Receipt Date: 20191220
  Transmission Date: 20200122
  Serious: Yes (Hospitalization)
  Sender: FDA-Public Use
  Company Number: CA-ACTELION-A-NJ2017-159894

PATIENT
  Age: 57 Year
  Sex: Female
  Weight: 48.53 kg

DRUGS (11)
  1. ULORIC [Concomitant]
     Active Substance: FEBUXOSTAT
     Dosage: 80 MG, QD
  2. SYNTHROID [Concomitant]
     Active Substance: LEVOTHYROXINE SODIUM
     Dosage: 0.1 MG, UNK
  3. FUROSEMIDE. [Concomitant]
     Active Substance: FUROSEMIDE
     Dosage: 20 MG, BID
  4. OPSUMIT [Suspect]
     Active Substance: MACITENTAN
     Indication: PULMONARY ARTERIAL HYPERTENSION
     Dosage: 10 MG, QD
     Route: 048
     Dates: start: 20170911
  5. TOLOXIN [Concomitant]
     Active Substance: DIGOXIN
     Dosage: 0.062 MG, UNK
  6. ATASOL [Concomitant]
     Dosage: 500 MG, PRN
  7. OPSUMIT [Suspect]
     Active Substance: MACITENTAN
     Dosage: 10 MG, QD
     Route: 048
     Dates: start: 20190626
  8. COUMADIN [Concomitant]
     Active Substance: WARFARIN SODIUM
  9. VALSARTAN. [Concomitant]
     Active Substance: VALSARTAN
     Dosage: 40 MG, UNK
  10. ACEBUTOLOL TEVA [Concomitant]
     Dosage: 100 MG, UNK
  11. FLOVENT [Concomitant]
     Active Substance: FLUTICASONE PROPIONATE
     Dosage: Q2DAYS

REACTIONS (5)
  - Fluid retention [Not Recovered/Not Resolved]
  - Oedema peripheral [Not Recovered/Not Resolved]
  - Dyspnoea [Not Recovered/Not Resolved]
  - Terminal state [Not Recovered/Not Resolved]
  - Weight increased [Not Recovered/Not Resolved]

NARRATIVE: CASE EVENT DATE: 20170911
